FAERS Safety Report 24387682 (Version 1)
Quarter: 2024Q4

REPORT INFORMATION
  Report Type: Spontaneous
  Country: US (occurrence: None)
  Receive Date: 20241001
  Receipt Date: 20241001
  Transmission Date: 20250114
  Serious: No
  Sender: Public
  Company Number: None

PATIENT
  Age: 70 Year
  Sex: Female
  Weight: 76.5 kg

DRUGS (10)
  1. OZEMPIC [Suspect]
     Active Substance: SEMAGLUTIDE
     Indication: Type 2 diabetes mellitus
     Dosage: OTHER FREQUENCY : ONCE A WEEK;?
     Route: 058
     Dates: start: 20240909, end: 20240923
  2. OZEMPIC [Suspect]
     Active Substance: SEMAGLUTIDE
     Indication: Diabetes mellitus management
  3. ELIQUIS [Concomitant]
     Active Substance: APIXABAN
  4. OZEMPIC [Concomitant]
     Active Substance: SEMAGLUTIDE
  5. LANTUS [Concomitant]
     Active Substance: INSULIN GLARGINE
  6. AMLODIPINE [Concomitant]
     Active Substance: AMLODIPINE BESYLATE
  7. Spirono/HCT [Concomitant]
  8. ROSUVASTATIN [Concomitant]
     Active Substance: ROSUVASTATIN
  9. LASIX [Concomitant]
     Active Substance: FUROSEMIDE
  10. AMIODARONE [Concomitant]
     Active Substance: AMIODARONE

REACTIONS (9)
  - Dyspnoea [None]
  - Tachypnoea [None]
  - Vertigo [None]
  - Balance disorder [None]
  - Nausea [None]
  - Vomiting [None]
  - Hyperhidrosis [None]
  - Gait disturbance [None]
  - Fatigue [None]

NARRATIVE: CASE EVENT DATE: 20240916
